FAERS Safety Report 19242054 (Version 1)
Quarter: 2021Q2

REPORT INFORMATION
  Report Type: Spontaneous
  Country: US (occurrence: US)
  Receive Date: 20210511
  Receipt Date: 20210511
  Transmission Date: 20210717
  Serious: Yes (Hospitalization)
  Sender: FDA-Public Use
  Company Number: US-ELITE LABORATORIES INC.-2021ELT00073

PATIENT
  Age: 33 Year
  Sex: Male

DRUGS (1)
  1. PHENTERMINE. [Suspect]
     Active Substance: PHENTERMINE
     Indication: OVERWEIGHT
     Dosage: 1?2 TABLETS, 1X/DAY
     Route: 048

REACTIONS (1)
  - Cardiac failure [Recovering/Resolving]
